FAERS Safety Report 5455690-1 (Version None)
Quarter: 2007Q3

REPORT INFORMATION
  Report Type: 
  Country: None (occurrence: None)
  Receive Date: 20070914
  Receipt Date: 20070906
  Transmission Date: 20080115
  Serious: Yes (Other)
  Sender: FDA-Public Use
  Company Number: 17405

PATIENT
  Sex: Female

DRUGS (13)
  1. CYTARABINE [Suspect]
     Indication: B PRECURSOR TYPE ACUTE LEUKAEMIA
     Dosage: 2400 MG/M2
  2. CYTARABINE [Suspect]
     Indication: B PRECURSOR TYPE ACUTE LEUKAEMIA
  3. CRANIAL IRRADIATION [Suspect]
     Indication: PROPHYLAXIS
  4. VINCRISTINE [Concomitant]
  5. METHOTREXATE [Concomitant]
  6. ASPARAGINASE [Concomitant]
  7. PREDNISONE [Concomitant]
  8. DAUNORUBICIN [Concomitant]
  9. DOXORUBICIN HCL [Concomitant]
  10. DEXAMETHASONE 0.5MG TAB [Concomitant]
  11. MERCAPTOPURINE [Concomitant]
  12. CYCLOPHOSPHAMIDE [Concomitant]
  13. THIOGUANINE [Concomitant]

REACTIONS (6)
  - COGNITIVE DISORDER [None]
  - EDUCATIONAL PROBLEM [None]
  - GROWTH HORMONE DEFICIENCY [None]
  - HYPOTHYROIDISM [None]
  - NERVOUS SYSTEM DISORDER [None]
  - PRECOCIOUS PUBERTY [None]
